FAERS Safety Report 18110129 (Version 1)
Quarter: 2020Q3

REPORT INFORMATION
  Report Type: Spontaneous
  Country: US (occurrence: US)
  Receive Date: 20200804
  Receipt Date: 20200804
  Transmission Date: 20201103
  Serious: No
  Sender: FDA-Public Use
  Company Number: US-JNJFOC-20200733130

PATIENT

DRUGS (1)
  1. WOMENS ROGAINE UNSCENTED [Suspect]
     Active Substance: MINOXIDIL
     Indication: PRODUCT USED FOR UNKNOWN INDICATION
     Dosage: AS PER INSTRUCTION
     Route: 061
     Dates: start: 2020, end: 2020

REACTIONS (7)
  - Ear swelling [Unknown]
  - Wrong technique in product usage process [Unknown]
  - Application site irritation [Unknown]
  - Pruritus [Unknown]
  - Rash pruritic [Unknown]
  - Erythema [Unknown]
  - Application site pruritus [Unknown]

NARRATIVE: CASE EVENT DATE: 2020
